FAERS Safety Report 7093087-1 (Version None)
Quarter: 2010Q4

REPORT INFORMATION
  Report Type: 
  Country: None (occurrence: None)
  Receive Date: 20101105
  Receipt Date: 20101105
  Transmission Date: 20110411
  Serious: No
  Sender: FDA-Public Use
  Company Number: None

PATIENT
  Age: 65 Year
  Sex: Female

DRUGS (2)
  1. CRESTOR [Suspect]
     Indication: LIVER INJURY
     Dates: start: 20080118, end: 20081001
  2. NITROFURANTOIN [Suspect]
     Indication: LIVER INJURY
     Dates: start: 20060530, end: 20081101

REACTIONS (4)
  - FATIGUE [None]
  - HEPATITIS [None]
  - HEPATOTOXICITY [None]
  - WEIGHT DECREASED [None]
